FAERS Safety Report 19111937 (Version 1)
Quarter: 2021Q2

REPORT INFORMATION
  Report Type: Spontaneous
  Country: US (occurrence: US)
  Receive Date: 20210409
  Receipt Date: 20210409
  Transmission Date: 20210717
  Serious: Yes (Life-Threatening, Hospitalization)
  Sender: FDA-Public Use
  Company Number: None

PATIENT
  Weight: 86 kg

DRUGS (2)
  1. APIXABAN (APIXABAN5MG TAB) [Suspect]
     Active Substance: APIXABAN
     Indication: CEREBROVASCULAR ACCIDENT
     Route: 048
  2. CELECOXIB(CELECOXIB 200MG CAP) [Suspect]
     Active Substance: CELECOXIB
     Route: 048

REACTIONS (2)
  - Haemorrhage intracranial [None]
  - Fall [None]
